FAERS Safety Report 19809487 (Version 1)
Quarter: 2021Q3

REPORT INFORMATION
  Report Type: Report from Study
  Country: US (occurrence: US)
  Receive Date: 20210908
  Receipt Date: 20210908
  Transmission Date: 20211014
  Serious: Yes (Other)
  Sender: FDA-Public Use
  Company Number: US-MALLINCKRODT PHARMACEUTICALS-T202103709

PATIENT
  Age: 47 Year
  Sex: Female
  Weight: 69 kg

DRUGS (2)
  1. REPOSITORY CORTICOTROPIN INJECTION [Suspect]
     Active Substance: CORTICOTROPIN
     Indication: MULTIPLE SCLEROSIS
     Dosage: 80 UNITS ONCE A DAY FOR 5 DAYS
     Route: 058
     Dates: start: 201710
  2. VITAMIN B12 [Concomitant]
     Active Substance: CYANOCOBALAMIN
     Indication: PRODUCT USED FOR UNKNOWN INDICATION
     Dosage: UNK, SHOTS
     Route: 065

REACTIONS (14)
  - Fatigue [Not Recovered/Not Resolved]
  - Post-traumatic stress disorder [Unknown]
  - Oropharyngeal pain [Not Recovered/Not Resolved]
  - Lymphadenopathy [Unknown]
  - Nervousness [Not Recovered/Not Resolved]
  - Asthenia [Not Recovered/Not Resolved]
  - Optic neuritis [Unknown]
  - Swelling face [Unknown]
  - Multiple sclerosis relapse [Not Recovered/Not Resolved]
  - Cardiac disorder [Not Recovered/Not Resolved]
  - Central nervous system lesion [Unknown]
  - Diabetes mellitus [Not Recovered/Not Resolved]
  - Autoimmune disorder [Unknown]
  - Nausea [Unknown]

NARRATIVE: CASE EVENT DATE: 201910
